FAERS Safety Report 10221212 (Version 1)
Quarter: 2014Q2

REPORT INFORMATION
  Report Type: Spontaneous
  Country: US (occurrence: None)
  Receive Date: 20140605
  Receipt Date: 20140605
  Transmission Date: 20141212
  Serious: Yes (Other)
  Sender: FDA-Public Use
  Company Number: None

PATIENT
  Age: 46 Year
  Sex: Male
  Weight: 99.79 kg

DRUGS (1)
  1. VALPROIC ACID 50 MG 250 MG FUN PHARMACEUTICALS [Suspect]
     Indication: BIPOLAR I DISORDER
     Dosage: AM
     Route: 048
     Dates: start: 20140428

REACTIONS (3)
  - Hypomania [None]
  - Disease recurrence [None]
  - Product substitution issue [None]
